FAERS Safety Report 10913192 (Version 2)
Quarter: 2015Q4

REPORT INFORMATION
  Report Type: Spontaneous
  Country: JP (occurrence: JP)
  Receive Date: 20150313
  Receipt Date: 20151014
  Transmission Date: 20160304
  Serious: Yes (Death)
  Sender: FDA-Public Use
  Company Number: JP-ACTELION-A-CH2015-114195

PATIENT
  Age: 54 Year
  Sex: Female

DRUGS (15)
  1. VELETRI [Suspect]
     Active Substance: EPOPROSTENOL
     Indication: PULMONARY ARTERIAL HYPERTENSION
     Dosage: 55 NG/KG, PER MIN
     Route: 042
     Dates: start: 20150112, end: 20150301
  2. OXYGEN. [Concomitant]
     Active Substance: OXYGEN
  3. VELETRI [Suspect]
     Active Substance: EPOPROSTENOL
     Dosage: 52 NG/KG, PER MIN
     Route: 042
     Dates: start: 20141213
  4. AMBRISENTAN [Concomitant]
     Active Substance: AMBRISENTAN
  5. BERAPROST SODIUM [Concomitant]
     Active Substance: BERAPROST SODIUM
  6. FUROSEMIDE. [Concomitant]
     Active Substance: FUROSEMIDE
  7. VELETRI [Suspect]
     Active Substance: EPOPROSTENOL
     Dosage: 14.5 NG/KG, PER MIN
     Route: 042
     Dates: start: 20141113
  8. ALLOPURINOL. [Concomitant]
     Active Substance: ALLOPURINOL
  9. DIGOXIN. [Concomitant]
     Active Substance: DIGOXIN
  10. SPIRONOLACTONE. [Concomitant]
     Active Substance: SPIRONOLACTONE
  11. SILDENAFIL CITRATE. [Concomitant]
     Active Substance: SILDENAFIL CITRATE
  12. TOLVAPTAN [Concomitant]
     Active Substance: TOLVAPTAN
  13. AZOSEMIDE [Concomitant]
     Active Substance: AZOSEMIDE
  14. WARFARIN POTASSIUM [Concomitant]
     Active Substance: WARFARIN POTASSIUM
  15. TRICHLORMETHIAZIDE [Concomitant]
     Active Substance: TRICHLORMETHIAZIDE

REACTIONS (3)
  - Right ventricular failure [Fatal]
  - Condition aggravated [Fatal]
  - Pulmonary arterial hypertension [Fatal]
